FAERS Safety Report 6251943-8 (Version None)
Quarter: 2009Q2

REPORT INFORMATION
  Report Type: 
  Country: None (occurrence: None)
  Receive Date: 20090630
  Receipt Date: 20090626
  Transmission Date: 20091009
  Serious: Yes (Death)
  Sender: FDA-Public Use
  Company Number: PHEH2009US06802

PATIENT
  Sex: Male

DRUGS (7)
  1. TASIGNA [Suspect]
     Indication: LYMPHOCYTIC LEUKAEMIA
     Dosage: 2 X 200 MG BID
     Dates: start: 20081201, end: 20090201
  2. METOPROLOL SUCCINATE [Concomitant]
  3. SIMVASTATIN [Concomitant]
  4. LEVOXYL [Concomitant]
  5. ASPIRIN [Concomitant]
  6. PROTONIX [Concomitant]
  7. TRIAMTERENE AND HYDROCHLOROTHIAZIDE [Concomitant]

REACTIONS (1)
  - DEATH [None]
